FAERS Safety Report 6282451-6 (Version None)
Quarter: 2009Q3

REPORT INFORMATION
  Report Type: 
  Country: None (occurrence: None)
  Receive Date: 20090724
  Receipt Date: 20090715
  Transmission Date: 20100115
  Serious: Yes (Other)
  Sender: FDA-Public Use
  Company Number: AR-ROCHE-644158

PATIENT
  Age: 36 Year
  Sex: Female

DRUGS (1)
  1. TAMIFLU [Suspect]
     Indication: PROPHYLAXIS
     Dosage: REPORTED AS 75 MG PER DAY DURING 10 DAYS.
     Route: 048
     Dates: start: 20090701, end: 20090701

REACTIONS (3)
  - ANXIETY [None]
  - PAROSMIA [None]
  - PERSECUTORY DELUSION [None]
